FAERS Safety Report 5762364-6 (Version None)
Quarter: 2008Q2

REPORT INFORMATION
  Report Type: 
  Country: None (occurrence: None)
  Receive Date: 20080609
  Receipt Date: 20080529
  Transmission Date: 20081010
  Serious: Yes (Other)
  Sender: FDA-Public Use
  Company Number: US-ROCHE-511003

PATIENT
  Sex: Female

DRUGS (2)
  1. PEGASYS [Suspect]
     Dosage: FORM: PRE-FILLED SYRINGE,
     Route: 065
     Dates: start: 20070603, end: 20080427
  2. COPEGUS [Suspect]
     Route: 065
     Dates: start: 20070603, end: 20080427

REACTIONS (41)
  - ALOPECIA [None]
  - AMNESIA [None]
  - ANAEMIA [None]
  - ARTHRALGIA [None]
  - ARTHRITIS [None]
  - BLADDER PROLAPSE [None]
  - BLOOD CREATININE INCREASED [None]
  - BLOOD UREA INCREASED [None]
  - BREAST DISCOMFORT [None]
  - BREAST OPERATION [None]
  - CHILLS [None]
  - CYSTITIS HAEMORRHAGIC [None]
  - DECREASED APPETITE [None]
  - DEPRESSION [None]
  - DIZZINESS [None]
  - DRY MOUTH [None]
  - DYSGEUSIA [None]
  - DYSPEPSIA [None]
  - DYSPHONIA [None]
  - DYSPNOEA EXERTIONAL [None]
  - EAR PAIN [None]
  - EMOTIONAL DISORDER [None]
  - FATIGUE [None]
  - FEELING ABNORMAL [None]
  - GASTRIC DISORDER [None]
  - GINGIVAL BLEEDING [None]
  - HYPERHIDROSIS [None]
  - HYPERSENSITIVITY [None]
  - HYPOTHYROIDISM [None]
  - INSOMNIA [None]
  - MUSCLE SPASMS [None]
  - MYALGIA [None]
  - NAUSEA [None]
  - NO THERAPEUTIC RESPONSE [None]
  - OESOPHAGEAL DISORDER [None]
  - PYREXIA [None]
  - RASH MACULAR [None]
  - SINUS DISORDER [None]
  - SKIN REACTION [None]
  - WEIGHT DECREASED [None]
  - WHITE BLOOD CELL COUNT DECREASED [None]
